FAERS Safety Report 25585430 (Version 1)
Quarter: 2025Q3

REPORT INFORMATION
  Report Type: Spontaneous
  Country: US (occurrence: None)
  Receive Date: 20250718
  Receipt Date: 20250718
  Transmission Date: 20251020
  Serious: Yes (Hospitalization)
  Sender: FDA-CTU
  Company Number: None

PATIENT
  Age: 82 Year
  Sex: Male

DRUGS (2)
  1. METHOTREXATE [Suspect]
     Active Substance: METHOTREXATE
  2. REMICADE [Suspect]
     Active Substance: INFLIXIMAB

REACTIONS (4)
  - Wernicke^s encephalopathy [None]
  - Memory impairment [None]
  - Therapy cessation [None]
  - Therapy interrupted [None]
